FAERS Safety Report 15271136 (Version 1)
Quarter: 2018Q3

REPORT INFORMATION
  Report Type: Other
  Country: US (occurrence: US)
  Receive Date: 20180813
  Receipt Date: 20180813
  Transmission Date: 20181010
  Serious: Yes (Hospitalization, Other)
  Sender: FDA-Public Use
  Company Number: US-B. BRAUN MEDICAL INC.-2053609

PATIENT
  Age: 52 Year
  Sex: Female

DRUGS (2)
  1. LIDOCAINE HYDROCHLORIDE AND DEXTROSE [Suspect]
     Active Substance: DEXTROSE\LIDOCAINE HYDROCHLORIDE
     Route: 014
  2. TRIAMCINOLONE [Concomitant]
     Active Substance: TRIAMCINOLONE
     Route: 014

REACTIONS (5)
  - Chorea [Recovered/Resolved]
  - Hypertension [None]
  - Tachycardia [None]
  - Tachypnoea [None]
  - Toxicity to various agents [Recovered/Resolved]
